FAERS Safety Report 25691735 (Version 5)
Quarter: 2025Q4

REPORT INFORMATION
  Report Type: Spontaneous
  Country: US (occurrence: US)
  Receive Date: 20250818
  Receipt Date: 20251118
  Transmission Date: 20260118
  Serious: Yes (Other)
  Sender: BRISTOL-MYERS SQUIBB COMPANY
  Company Number: US-EXELIXIS-EXL-2025-010756

PATIENT
  Age: 50 Year
  Sex: Female
  Weight: 63 kg

DRUGS (13)
  1. OPDIVO [Suspect]
     Active Substance: NIVOLUMAB
     Indication: Clear cell renal cell carcinoma
     Dates: start: 20250212
  2. CABOMETYX [Suspect]
     Active Substance: CABOZANTINIB S-MALATE
     Indication: Clear cell renal cell carcinoma
     Dosage: 40 MG
     Route: 048
     Dates: start: 20250715
  3. CABOMETYX [Suspect]
     Active Substance: CABOZANTINIB S-MALATE
     Dosage: 40 MG
     Route: 048
  4. CABOMETYX [Suspect]
     Active Substance: CABOZANTINIB S-MALATE
     Dosage: 20 MG
     Route: 048
  5. METFORMIN [Concomitant]
     Active Substance: METFORMIN HYDROCHLORIDE
     Indication: Product used for unknown indication
  6. VALACYCLOVIR [Concomitant]
     Active Substance: VALACYCLOVIR HYDROCHLORIDE
     Indication: Product used for unknown indication
  7. ACETAMINOPHEN [Concomitant]
     Active Substance: ACETAMINOPHEN
     Indication: Pain
  8. LIDOCAINE [Concomitant]
     Active Substance: LIDOCAINE
     Indication: Pain
  9. MAGNESIUM HYDROXIDE [Concomitant]
     Active Substance: MAGNESIUM HYDROXIDE
     Indication: Constipation
  10. ONDANSETRON [Concomitant]
     Active Substance: ONDANSETRON
     Indication: Product used for unknown indication
  11. PROCHLORPERAZINE [Concomitant]
     Active Substance: PROCHLORPERAZINE
     Indication: Product used for unknown indication
  12. TOLTERODINE [Concomitant]
     Active Substance: TOLTERODINE
     Indication: Product used for unknown indication
  13. TRAMADOL [Concomitant]
     Active Substance: TRAMADOL
     Indication: Pain

REACTIONS (13)
  - Thrombocytopenia [Unknown]
  - Blood pressure increased [Recovering/Resolving]
  - Dysgeusia [Recovered/Resolved]
  - Stomatitis [Recovered/Resolved]
  - Weight decreased [Recovered/Resolved]
  - Headache [Unknown]
  - Liver function test increased [Unknown]
  - Fatigue [Recovered/Resolved]
  - Dermatitis [Recovered/Resolved]
  - Neck pain [Recovered/Resolved]
  - Decreased appetite [Recovered/Resolved]
  - Disorientation [Recovered/Resolved]
  - Hair colour changes [Unknown]
